FAERS Safety Report 15958350 (Version 1)
Quarter: 2019Q1

REPORT INFORMATION
  Report Type: Spontaneous
  Country: US (occurrence: US)
  Receive Date: 20190213
  Receipt Date: 20190213
  Transmission Date: 20190417
  Serious: Yes (Other)
  Sender: FDA-Public Use
  Company Number: US-PFIZER INC-2019050618

PATIENT
  Sex: Female

DRUGS (3)
  1. LETROZOLE. [Concomitant]
     Active Substance: LETROZOLE
     Dosage: UNK
  2. IBRANCE [Suspect]
     Active Substance: PALBOCICLIB
     Dosage: 125 MG, CYCLIC (ONCE DAILY FOR 21 CONSECUTIVE DAYS FOLLOWED BY 7 DAYS OFF )
     Route: 048
  3. OXYBUTYNIN. [Suspect]
     Active Substance: OXYBUTYNIN CHLORIDE
     Indication: HOT FLUSH
     Dosage: UNK

REACTIONS (15)
  - Nasopharyngitis [Unknown]
  - Hypersensitivity [Unknown]
  - Hyperhidrosis [Recovering/Resolving]
  - Anxiety [Recovering/Resolving]
  - Hypoaesthesia [Unknown]
  - Fatigue [Unknown]
  - Blood pressure decreased [Unknown]
  - Blister [Recovering/Resolving]
  - Chest pain [Recovering/Resolving]
  - Asthenia [Recovering/Resolving]
  - Speech disorder [Recovering/Resolving]
  - Neck mass [Recovered/Resolved]
  - Confusional state [Recovering/Resolving]
  - Dyspepsia [Recovering/Resolving]
  - Agitation [Recovering/Resolving]
